FAERS Safety Report 6985261-7 (Version None)
Quarter: 2010Q3

REPORT INFORMATION
  Report Type: 
  Country: None (occurrence: None)
  Receive Date: 20100915
  Receipt Date: 20100324
  Transmission Date: 20110219
  Serious: No
  Sender: FDA-Public Use
  Company Number: US-PFIZER INC-2010039262

PATIENT
  Sex: Female
  Weight: 90.7 kg

DRUGS (1)
  1. LYRICA [Suspect]
     Indication: NEUROPATHY PERIPHERAL
     Dosage: 100 MG, 2X/DAY
     Route: 048
     Dates: start: 20070101

REACTIONS (2)
  - DRUG INEFFECTIVE [None]
  - WEIGHT INCREASED [None]
